FAERS Safety Report 4630773-4 (Version None)
Quarter: 2005Q2

REPORT INFORMATION
  Report Type: 
  Country: None (occurrence: None)
  Receive Date: 20050408
  Receipt Date: 20050330
  Transmission Date: 20051028
  Serious: Yes (Death, Life-Threatening, Hospitalization)
  Sender: FDA-Public Use
  Company Number: ZA-ROCHE-400467

PATIENT
  Age: 48 Year
  Sex: Female
  Weight: 50.5 kg

DRUGS (3)
  1. XELODA [Suspect]
     Indication: BREAST CANCER
     Route: 048
     Dates: start: 20050218, end: 20050303
  2. DOCETAXEL [Suspect]
     Indication: BREAST CANCER
     Dosage: TAKEN ON DAYS ONE AND EIGHT OF EACH 21 DAY CYCLE
     Route: 042
     Dates: start: 20050218, end: 20050225
  3. ANASTROZOLE [Suspect]
     Indication: DRUG USE FOR UNKNOWN INDICATION
     Dosage: TAKEN ONCE DAILY
     Route: 048
     Dates: start: 20050218

REACTIONS (6)
  - ACUTE RESPIRATORY DISTRESS SYNDROME [None]
  - DIARRHOEA [None]
  - NAUSEA [None]
  - NEUTROPENIA [None]
  - STOMATITIS [None]
  - VOMITING [None]
